FAERS Safety Report 5228975-1 (Version None)
Quarter: 2007Q1

REPORT INFORMATION
  Report Type: 
  Country: None (occurrence: None)
  Receive Date: 20061201
  Receipt Date: 20060815
  Transmission Date: 20070707
  Serious: No
  Sender: FDA-Public Use
  Company Number: US200606002530

PATIENT
  Sex: Female
  Weight: 110.2 kg

DRUGS (3)
  1. CYMBALTA [Suspect]
     Dosage: SEE IMAGE
     Route: 048
     Dates: start: 20050401, end: 20060515
  2. CYMBALTA [Suspect]
     Dosage: SEE IMAGE
     Route: 048
     Dates: start: 20060516, end: 20060525
  3. CYMBALTA [Suspect]
     Dosage: SEE IMAGE
     Route: 048
     Dates: end: 20060601

REACTIONS (3)
  - DRUG WITHDRAWAL SYNDROME [None]
  - HYPERTENSION [None]
  - SWELLING [None]
